FAERS Safety Report 9206203 (Version 1)
Quarter: 2013Q2

REPORT INFORMATION
  Report Type: Spontaneous
  Country: US (occurrence: None)
  Receive Date: 20130401
  Receipt Date: 20130401
  Transmission Date: 20140414
  Serious: Yes (Death)
  Sender: FDA-Public Use
  Company Number: None

PATIENT
  Sex: Male

DRUGS (1)
  1. VELCADE UNKNOWN MILLENNIUM [Suspect]
     Indication: PLASMA CELL MYELOMA

REACTIONS (1)
  - Pyrexia [None]
